FAERS Safety Report 8498698-4 (Version None)
Quarter: 2012Q3

REPORT INFORMATION
  Report Type: 
  Country: None (occurrence: None)
  Receive Date: 20120709
  Receipt Date: 20120627
  Transmission Date: 20120928
  Serious: No
  Sender: FDA-Public Use
  Company Number: US-AMGEN-USASP2012038737

PATIENT
  Sex: Female

DRUGS (3)
  1. ENBREL [Suspect]
     Indication: PSORIASIS
     Dosage: 50 MG, QWK
  2. CELEXA                             /01400501/ [Concomitant]
     Dosage: UNK
  3. HYDROXYZINE [Concomitant]
     Dosage: UNK

REACTIONS (2)
  - MIGRAINE [None]
  - HYPOTENSION [None]
